FAERS Safety Report 4302755-3 (Version None)
Quarter: 2004Q1

REPORT INFORMATION
  Report Type: 
  Country: None (occurrence: None)
  Receive Date: 20040224
  Receipt Date: 20030306
  Transmission Date: 20041129
  Serious: No
  Sender: FDA-Public Use
  Company Number: US-BRISTOL-MYERS SQUIBB COMPANY-12204558

PATIENT
  Age: 30 Year
  Sex: Female
  Weight: 61 kg

DRUGS (1)
  1. KENALOG [Suspect]
     Indication: SCAR
     Route: 051
     Dates: start: 20021017, end: 20021017

REACTIONS (1)
  - INJECTION SITE ATROPHY [None]
